FAERS Safety Report 5326256-9 (Version None)
Quarter: 2007Q2

REPORT INFORMATION
  Report Type: 
  Country: None (occurrence: None)
  Receive Date: 20070516
  Receipt Date: 20070509
  Transmission Date: 20071010
  Serious: Yes (Other)
  Sender: FDA-Public Use
  Company Number: PHEH2007US07295

PATIENT
  Age: 74 Year
  Sex: Female

DRUGS (1)
  1. ZELNORM [Suspect]
     Indication: CONSTIPATION
     Dosage: 6 MG, BID
     Route: 048
     Dates: start: 20040101, end: 20070416

REACTIONS (5)
  - BLOOD PRESSURE FLUCTUATION [None]
  - CARDIAC STRESS TEST ABNORMAL [None]
  - CATHETERISATION CARDIAC [None]
  - CHEST PAIN [None]
  - HEART RATE IRREGULAR [None]
